FAERS Safety Report 21495996 (Version 1)
Quarter: 2022Q4

REPORT INFORMATION
  Report Type: Report from Study
  Country: US (occurrence: US)
  Receive Date: 20221022
  Receipt Date: 20221022
  Transmission Date: 20230113
  Serious: No
  Sender: FDA-Public Use
  Company Number: US-ABBVIE-4146868

PATIENT
  Sex: Female

DRUGS (11)
  1. VENETOCLAX [Suspect]
     Active Substance: VENETOCLAX
     Indication: B-cell small lymphocytic lymphoma
  2. VENETOCLAX [Suspect]
     Active Substance: VENETOCLAX
     Indication: B-cell small lymphocytic lymphoma
     Route: 048
     Dates: start: 20220127
  3. Metoprolol Succinate ER Oral Tablet [Concomitant]
     Indication: Product used for unknown indication
  4. Clonidine HCl Oral Tablet 0.1 MG [Concomitant]
     Indication: Product used for unknown indication
  5. OBINUTUZUMAB [Concomitant]
     Active Substance: OBINUTUZUMAB
     Indication: Product used for unknown indication
  6. FLUoxetine HCl Oral Tablet 10 MG [Concomitant]
     Indication: Product used for unknown indication
  7. Gabapentin Oral Capsule 100 MG [Concomitant]
     Indication: Product used for unknown indication
  8. 5 mg Amlodipine besylate [Concomitant]
     Indication: Product used for unknown indication
  9. PANTOPRAZOLE SODIUM [Concomitant]
     Active Substance: PANTOPRAZOLE SODIUM
     Indication: Product used for unknown indication
  10. Lorazepam Oral Tablet 1 MG [Concomitant]
     Indication: Product used for unknown indication
  11. HYDROMORPHONE [Concomitant]
     Active Substance: HYDROMORPHONE
     Indication: Product used for unknown indication

REACTIONS (1)
  - Thrombocytopenia [Not Recovered/Not Resolved]

NARRATIVE: CASE EVENT DATE: 20220101
